FAERS Safety Report 6629654-6 (Version None)
Quarter: 2010Q1

REPORT INFORMATION
  Report Type: 
  Country: None (occurrence: None)
  Receive Date: 20100311
  Receipt Date: 20100225
  Transmission Date: 20100710
  Serious: No
  Sender: FDA-Public Use
  Company Number: US-B.I. PHARMACEUTICALS,INC./RIDGEFIELD-2009-BP-14851BP

PATIENT
  Sex: Female

DRUGS (7)
  1. SPIRIVA [Suspect]
     Indication: CHRONIC OBSTRUCTIVE PULMONARY DISEASE
     Dosage: 18 MCG
     Route: 055
     Dates: start: 20090901
  2. HYDROXINE [Concomitant]
     Indication: PRURITUS
  3. KLONAZEPAM [Concomitant]
     Indication: RESTLESS LEGS SYNDROME
  4. UNSPECIFIED BLOOD PRESSURE MEDICATION [Concomitant]
     Indication: HYPERTENSION
  5. ATARAX [Concomitant]
     Indication: PRURITUS
  6. WELCHOL [Concomitant]
     Indication: GASTROINTESTINAL DISORDER
  7. MULTI-VITAMIN [Concomitant]
     Indication: PROPHYLAXIS

REACTIONS (2)
  - COUGH [None]
  - RASH [None]
